FAERS Safety Report 9064335 (Version 1)
Quarter: 2013Q1

REPORT INFORMATION
  Report Type: Spontaneous
  Country: GB (occurrence: GB)
  Receive Date: 20130213
  Receipt Date: 20130213
  Transmission Date: 20140127
  Serious: Yes (Other)
  Sender: FDA-Public Use
  Company Number: GB-ALLERGAN-1301675US

PATIENT
  Sex: Female

DRUGS (1)
  1. BOTOX? [Suspect]
     Indication: SKIN WRINKLING
     Dosage: UNK UNK, SINGLE

REACTIONS (2)
  - Pharyngeal oedema [Unknown]
  - Dyspnoea [Unknown]
